FAERS Safety Report 20077153 (Version 2)
Quarter: 2022Q1

REPORT INFORMATION
  Report Type: Report from Study
  Country: US (occurrence: US)
  Receive Date: 20211116
  Receipt Date: 20220215
  Transmission Date: 20220423
  Serious: No
  Sender: FDA-Public Use
  Company Number: US-TG THERAPEUTICS INC.-TGT002084

PATIENT
  Age: 92 Year
  Sex: Female

DRUGS (3)
  1. UMBRALISIB [Suspect]
     Active Substance: UMBRALISIB
     Indication: Non-Hodgkin^s lymphoma
     Dosage: 400 MILLIGRAM, QD
     Route: 048
     Dates: start: 202107
  2. UMBRALISIB [Suspect]
     Active Substance: UMBRALISIB
     Indication: Non-Hodgkin^s lymphoma
     Dosage: 800 MILLIGRAM, QD
     Route: 048
  3. UMBRALISIB [Suspect]
     Active Substance: UMBRALISIB
     Dosage: 400 MILLIGRAM, QD WITH FOOD
     Route: 048

REACTIONS (16)
  - Pain [Unknown]
  - Urine output increased [Unknown]
  - Disease progression [Unknown]
  - Visual acuity reduced [Unknown]
  - Constipation [Unknown]
  - Paraesthesia [Unknown]
  - Weight decreased [Unknown]
  - Diverticulum [Unknown]
  - Irritable bowel syndrome [Unknown]
  - Back disorder [Unknown]
  - Decreased appetite [Unknown]
  - Nausea [Unknown]
  - Fatigue [Unknown]
  - Diarrhoea [Not Recovered/Not Resolved]
  - Product complaint [Unknown]
  - Oedema peripheral [Unknown]

NARRATIVE: CASE EVENT DATE: 20211005
